FAERS Safety Report 17804789 (Version 1)
Quarter: 2020Q2

REPORT INFORMATION
  Report Type: Spontaneous
  Country: US (occurrence: US)
  Receive Date: 20200519
  Receipt Date: 20200519
  Transmission Date: 20200714
  Serious: Yes (Other)
  Sender: FDA-Public Use
  Company Number: US-ALEXION-A202006796

PATIENT
  Sex: Female

DRUGS (1)
  1. ULTOMIRIS [Suspect]
     Active Substance: RAVULIZUMAB-CWVZ
     Indication: PRODUCT USED FOR UNKNOWN INDICATION
     Dosage: UNK
     Route: 065

REACTIONS (8)
  - Stress [Unknown]
  - Infection [Unknown]
  - Immune system disorder [Unknown]
  - Seizure [Unknown]
  - Ill-defined disorder [Unknown]
  - Coma [Unknown]
  - Renal disorder [Unknown]
  - Cerebrovascular accident [Unknown]
